FAERS Safety Report 5740421-8 (Version None)
Quarter: 2008Q2

REPORT INFORMATION
  Report Type: 
  Country: None (occurrence: None)
  Receive Date: 20080516
  Receipt Date: 20080508
  Transmission Date: 20081010
  Serious: Yes (Disabling)
  Sender: FDA-Public Use
  Company Number: JP-ASTRAZENECA-2008AP03134

PATIENT
  Age: 52 Year
  Sex: Male
  Weight: 60 kg

DRUGS (14)
  1. NAROPIN [Suspect]
     Indication: POSTOPERATIVE ANALGESIA
     Dosage: 6 ML/HR FOR 18 HOURS AS MIXTURE
     Route: 008
     Dates: start: 20080421, end: 20080422
  2. NAROPIN [Suspect]
     Dosage: 6 ML/HR FOR 18 HOURS AS MIXTURE
     Route: 008
     Dates: start: 20080421, end: 20080422
  3. CARBOCAIN [Concomitant]
     Indication: EPIDURAL ANAESTHESIA
     Route: 008
     Dates: start: 20080421, end: 20080421
  4. DIPRIVAN [Concomitant]
     Indication: INDUCTION OF ANAESTHESIA
     Route: 042
     Dates: start: 20080421, end: 20080421
  5. FENTANYL CITRATE [Concomitant]
     Indication: ANALGESIC THERAPY
     Route: 042
     Dates: start: 20080421, end: 20080421
  6. FENTANYL CITRATE [Concomitant]
     Indication: EPIDURAL ANAESTHESIA
     Route: 042
     Dates: start: 20080421, end: 20080421
  7. FENTANYL CITRATE [Concomitant]
     Indication: POSTOPERATIVE ANALGESIA
     Route: 042
     Dates: start: 20080421, end: 20080421
  8. FENTANYL CITRATE [Concomitant]
     Route: 008
     Dates: start: 20080421, end: 20080421
  9. FENTANYL CITRATE [Concomitant]
     Route: 008
     Dates: start: 20080421, end: 20080421
  10. FENTANYL CITRATE [Concomitant]
     Route: 008
     Dates: start: 20080421, end: 20080421
  11. FENTANYL CITRATE [Concomitant]
     Dosage: 6 ML/HR FOR 18 HOURS AS MIXTURE
     Route: 008
     Dates: start: 20080421, end: 20080422
  12. FENTANYL CITRATE [Concomitant]
     Dosage: 6 ML/HR FOR 18 HOURS AS MIXTURE
     Route: 008
     Dates: start: 20080421, end: 20080422
  13. FENTANYL CITRATE [Concomitant]
     Dosage: 6 ML/HR FOR 18 HOURS AS MIXTURE
     Route: 008
     Dates: start: 20080421, end: 20080422
  14. DROLEPTAN [Concomitant]
     Indication: PROPHYLAXIS OF NAUSEA AND VOMITING
     Dosage: 6 ML/HR FOR 18 HOURS AS MIXTURE
     Route: 008
     Dates: start: 20080421, end: 20080422

REACTIONS (2)
  - MOVEMENT DISORDER [None]
  - SENSORY DISTURBANCE [None]
